FAERS Safety Report 23313682 (Version 8)
Quarter: 2025Q1

REPORT INFORMATION
  Report Type: Report from Study
  Country: CA (occurrence: CA)
  Receive Date: 20231219
  Receipt Date: 20250327
  Transmission Date: 20250408
  Serious: Yes (Hospitalization)
  Sender: ROCHE
  Company Number: CA-ROCHE-3472800

PATIENT
  Sex: Female

DRUGS (2)
  1. ENSPRYNG [Suspect]
     Active Substance: SATRALIZUMAB-MWGE
     Indication: Neuromyelitis optica spectrum disorder
     Route: 058
     Dates: start: 20201203
  2. AMOXICILLIN\CLAVULANIC ACID [Concomitant]
     Active Substance: AMOXICILLIN\CLAVULANIC ACID
     Route: 065

REACTIONS (8)
  - Osteomyelitis [Unknown]
  - Abscess [Unknown]
  - Bursitis [Unknown]
  - COVID-19 [Unknown]
  - Gastrointestinal disorder [Unknown]
  - Bacterial test positive [Unknown]
  - Urinary tract infection [Unknown]
  - Drug hypersensitivity [Unknown]
